FAERS Safety Report 8145192-6 (Version None)
Quarter: 2012Q1

REPORT INFORMATION
  Report Type: 
  Country: None (occurrence: None)
  Receive Date: 20120217
  Receipt Date: 20120215
  Transmission Date: 20120608
  Serious: Yes (Death, Hospitalization)
  Sender: FDA-Public Use
  Company Number: PHHY2012LB007246

PATIENT
  Age: 86 Year
  Sex: Female

DRUGS (1)
  1. EXFORGE [Suspect]
     Dosage: 1 DF, QD(160 MG VALS AND 5 MG AMLO)
     Route: 048
     Dates: start: 20110301, end: 20111201

REACTIONS (2)
  - RENAL FAILURE CHRONIC [None]
  - HYPERKALAEMIA [None]
